FAERS Safety Report 25237035 (Version 2)
Quarter: 2025Q2

REPORT INFORMATION
  Report Type: Report from Study
  Country: US (occurrence: US)
  Receive Date: 20250424
  Receipt Date: 20250516
  Transmission Date: 20250716
  Serious: Yes (Death, Other)
  Sender: ABBVIE
  Company Number: US-ABBVIE-6246780

PATIENT
  Sex: Female

DRUGS (1)
  1. SYNTHROID [Suspect]
     Active Substance: LEVOTHYROXINE SODIUM
     Indication: Product used for unknown indication
     Route: 048
     Dates: start: 2022

REACTIONS (8)
  - Urinary tract obstruction [Fatal]
  - Cardiac failure [Unknown]
  - Respiratory failure [Unknown]
  - Nephrolithiasis [Unknown]
  - Cardiogenic shock [Fatal]
  - Pyelonephritis [Fatal]
  - Multiple sclerosis [Unknown]
  - Septic shock [Fatal]
